FAERS Safety Report 19120666 (Version 2)
Quarter: 2021Q2

REPORT INFORMATION
  Report Type: Report from Study
  Country: GB (occurrence: GB)
  Receive Date: 20210412
  Receipt Date: 20210420
  Transmission Date: 20210717
  Serious: Yes (Death, Hospitalization)
  Sender: FDA-Public Use
  Company Number: NVSC2021GB070207

PATIENT
  Age: 60 Year
  Sex: Male
  Weight: 74 kg

DRUGS (4)
  1. INC424A [Suspect]
     Active Substance: RUXOLITINIB
     Indication: ACUTE GRAFT VERSUS HOST DISEASE
     Dosage: UNK
     Route: 048
  2. CYCLOSPORINE. [Concomitant]
     Active Substance: CYCLOSPORINE
     Indication: PRODUCT USED FOR UNKNOWN INDICATION
     Dosage: 100 MG, BID
     Route: 042
     Dates: start: 20180424
  3. EXTRACORPOREAL PHOTOPHERESIS [Suspect]
     Active Substance: UNSPECIFIED INGREDIENT
     Indication: ACUTE GRAFT VERSUS HOST DISEASE
     Dosage: UNK, Q4W
     Route: 050
     Dates: start: 20180425
  4. METHYLPREDNISOLONE. [Concomitant]
     Active Substance: METHYLPREDNISOLONE
     Indication: PRODUCT USED FOR UNKNOWN INDICATION
     Dosage: 160 MG, QD
     Route: 042
     Dates: start: 20180424

REACTIONS (1)
  - Graft versus host disease [Fatal]

NARRATIVE: CASE EVENT DATE: 20180510
